FAERS Safety Report 12634376 (Version 1)
Quarter: 2016Q3

REPORT INFORMATION
  Report Type: Spontaneous
  Country: US (occurrence: US)
  Receive Date: 20160808
  Receipt Date: 20160808
  Transmission Date: 20161109
  Serious: Yes (Hospitalization, Other)
  Sender: FDA-Public Use
  Company Number: US-GLAXOSMITHKLINE-US2016GSK113383

PATIENT
  Age: 73 Year
  Sex: Female

DRUGS (1)
  1. TANZEUM [Suspect]
     Active Substance: ALBIGLUTIDE
     Indication: TYPE 2 DIABETES MELLITUS
     Dosage: 30 MG, WE
     Route: 042
     Dates: start: 201606

REACTIONS (7)
  - Device use error [Unknown]
  - Product preparation error [Unknown]
  - Blood glucose decreased [Unknown]
  - Decreased appetite [Unknown]
  - Blood glucose increased [Unknown]
  - Transient ischaemic attack [Unknown]
  - Tooth extraction [Unknown]

NARRATIVE: CASE EVENT DATE: 201607
